FAERS Safety Report 12839559 (Version 1)
Quarter: 2016Q4

REPORT INFORMATION
  Report Type: Spontaneous
  Country: IT (occurrence: IT)
  Receive Date: 20161012
  Receipt Date: 20161012
  Transmission Date: 20170207
  Serious: Yes (Other)
  Sender: FDA-Public Use
  Company Number: IT-GLAXOSMITHKLINE-IT2016GSK146344

PATIENT
  Age: 13 Year
  Sex: Female

DRUGS (3)
  1. TORA-DOL [Suspect]
     Active Substance: KETOROLAC TROMETHAMINE
     Indication: ACUTE ABDOMEN
     Dosage: 1 UNK, SINGLE
     Dates: start: 20160521, end: 20160521
  2. ZANTAC [Suspect]
     Active Substance: RANITIDINE HYDROCHLORIDE
     Indication: GASTRITIS PROPHYLAXIS
     Dosage: 1 UNK, SINGLE
     Dates: start: 20160521, end: 20160521
  3. SPASMEX [Suspect]
     Active Substance: TROSPIUM CHLORIDE
     Indication: MUSCLE RELAXANT THERAPY
     Dosage: 2 UNK, SINGLE
     Dates: start: 20160521, end: 20160521

REACTIONS (2)
  - Urticaria [Recovering/Resolving]
  - Throat tightness [Recovering/Resolving]

NARRATIVE: CASE EVENT DATE: 20160521
